FAERS Safety Report 4296589-6 (Version None)
Quarter: 2004Q1

REPORT INFORMATION
  Report Type: 
  Country: None (occurrence: None)
  Receive Date: 20040126
  Receipt Date: 20030826
  Transmission Date: 20041129
  Serious: No
  Sender: FDA-Public Use
  Company Number: USA030845401

PATIENT
  Age: 12 Year
  Sex: Male
  Weight: 39 kg

DRUGS (3)
  1. STRATTERA [Suspect]
     Indication: ATTENTION DEFICIT/HYPERACTIVITY DISORDER
  2. DEXTRO AMPHETAMINE SULFATE TAB [Concomitant]
  3. BENADRYL [Concomitant]

REACTIONS (1)
  - MEMORY IMPAIRMENT [None]
